FAERS Safety Report 4534660-1 (Version None)
Quarter: 2004Q4

REPORT INFORMATION
  Report Type: 
  Country: None (occurrence: None)
  Receive Date: 20041214
  Receipt Date: 20041018
  Transmission Date: 20050328
  Serious: No
  Sender: FDA-Public Use
  Company Number: 2004240284US

PATIENT
  Sex: Female

DRUGS (1)
  1. BEXTRA [Suspect]
     Indication: SPINAL DISORDER

REACTIONS (6)
  - ANALGESIC INTERVENTION SUPPORTIVE THERAPY [None]
  - LIMB INJURY [None]
  - PHOTODERMATOSIS [None]
  - PSORIASIS [None]
  - RASH [None]
  - SKIN LESION [None]
